FAERS Safety Report 15644724 (Version 1)
Quarter: 2018Q4

REPORT INFORMATION
  Report Type: Spontaneous
  Country: FR (occurrence: FR)
  Receive Date: 20181121
  Receipt Date: 20181121
  Transmission Date: 20190205
  Serious: Yes (Life-Threatening, Hospitalization, Other)
  Sender: FDA-Public Use
  Company Number: FR-SA-2018SA314985

PATIENT
  Age: 28 Year
  Sex: Male

DRUGS (2)
  1. METHADONE HYDROCHLORIDE. [Suspect]
     Active Substance: METHADONE HYDROCHLORIDE
     Dosage: 240 MG, QD
     Route: 048
     Dates: start: 20180830, end: 20180830
  2. ZOLPIDEM TARTRATE. [Suspect]
     Active Substance: ZOLPIDEM TARTRATE
     Dosage: 4 DF, QD
     Route: 048
     Dates: start: 20180830, end: 20180830

REACTIONS (6)
  - Rhabdomyolysis [Recovered/Resolved]
  - Intentional overdose [Unknown]
  - Oedema peripheral [Recovered/Resolved]
  - Somnolence [Recovered/Resolved]
  - Hyperkalaemia [Recovered/Resolved]
  - Tachycardia [Recovered/Resolved]

NARRATIVE: CASE EVENT DATE: 20180830
